FAERS Safety Report 5182255-1 (Version None)
Quarter: 2006Q4

REPORT INFORMATION
  Report Type: 
  Country: None (occurrence: None)
  Receive Date: 20061220
  Receipt Date: 20061213
  Transmission Date: 20070319
  Serious: Yes (Life-Threatening, Other)
  Sender: FDA-Public Use
  Company Number: 2006AP05988

PATIENT
  Age: 16 Year
  Sex: Female

DRUGS (4)
  1. SEROQUEL [Suspect]
     Indication: ADJUSTMENT DISORDER
     Route: 048
     Dates: end: 20060701
  2. SEROQUEL [Suspect]
     Route: 048
     Dates: start: 20061130, end: 20061130
  3. DEPROMEL [Suspect]
     Indication: ADJUSTMENT DISORDER
     Route: 048
     Dates: end: 20060701
  4. DEPROMEL [Suspect]
     Route: 048
     Dates: start: 20061130, end: 20061130

REACTIONS (5)
  - CONVULSION [None]
  - OVERDOSE [None]
  - SUICIDE ATTEMPT [None]
  - THERAPY NON-RESPONDER [None]
  - VENTRICULAR TACHYCARDIA [None]
